FAERS Safety Report 14997821 (Version 1)
Quarter: 2018Q2

REPORT INFORMATION
  Report Type: Spontaneous
  Country: US (occurrence: US)
  Receive Date: 20180611
  Receipt Date: 20180611
  Transmission Date: 20180711
  Serious: No
  Sender: FDA-Public Use
  Company Number: US-FOUNDATIONCONSUMERHC-2018-US-006489

PATIENT
  Age: 17 Year
  Sex: Female
  Weight: 51.71 kg

DRUGS (3)
  1. UNSPECIFIED MULTIVITAMIN [Concomitant]
  2. PLAN B ONE-STEP [Suspect]
     Active Substance: LEVONORGESTREL
     Indication: POST COITAL CONTRACEPTION
     Dosage: 1 DOSE X 1
     Route: 048
     Dates: start: 20180417, end: 20180417
  3. PLAN B ONE-STEP [Suspect]
     Active Substance: LEVONORGESTREL
     Indication: POST COITAL CONTRACEPTION
     Dosage: 1 DOSE X 1
     Route: 048
     Dates: start: 20180325, end: 20180325

REACTIONS (3)
  - Menorrhagia [Recovered/Resolved]
  - Intentional product misuse [Recovered/Resolved]
  - Vaginal haemorrhage [Not Recovered/Not Resolved]

NARRATIVE: CASE EVENT DATE: 20180325
